FAERS Safety Report 19874615 (Version 2)
Quarter: 2021Q4

REPORT INFORMATION
  Report Type: Report from Study
  Country: US (occurrence: US)
  Receive Date: 20210923
  Receipt Date: 20211210
  Transmission Date: 20220303
  Serious: Yes (Hospitalization, Other)
  Sender: FDA-Public Use
  Company Number: US-GLAXOSMITHKLINE-US2021GSK200688

PATIENT
  Age: 70 Year
  Sex: Male

DRUGS (1)
  1. LAMOTRIGINE [Suspect]
     Active Substance: LAMOTRIGINE
     Indication: Product used for unknown indication
     Dosage: UNK

REACTIONS (5)
  - Drug level increased [Unknown]
  - Toxicity to various agents [Unknown]
  - Mental status changes [Unknown]
  - Seizure [Unknown]
  - Paranoia [Unknown]
